FAERS Safety Report 17263371 (Version 1)
Quarter: 2019Q4

REPORT INFORMATION
  Report Type: Spontaneous
  Country: US (occurrence: US)
  Receive Date: 20191218
  Receipt Date: 20191218
  Transmission Date: 20200122
  Serious: Yes (Other)
  Sender: FDA-Public Use
  Company Number: None

PATIENT
  Age: 74 Year
  Sex: Female
  Weight: 116 kg

DRUGS (9)
  1. MACROBID [Suspect]
     Active Substance: NITROFURANTOIN\NITROFURANTOIN MONOHYDRATE
     Indication: KLEBSIELLA INFECTION
     Dosage: ?          QUANTITY:RODUCT, OR MEDICAL DEVICE;?
     Dates: start: 20160618, end: 20160627
  2. OXYBUTINYN [Concomitant]
  3. BUSPIRONE [Concomitant]
     Active Substance: BUSPIRONE HYDROCHLORIDE
  4. CRESTOR [Concomitant]
     Active Substance: ROSUVASTATIN CALCIUM
  5. VERAPAMIL [Concomitant]
     Active Substance: VERAPAMIL HYDROCHLORIDE
  6. ALENDRONATE [Concomitant]
     Active Substance: ALENDRONATE SODIUM
  7. MULTI CALCIUM + VIT D3 [Concomitant]
  8. BIOTIN [Concomitant]
     Active Substance: BIOTIN
  9. CRANBERRY. [Suspect]
     Active Substance: CRANBERRY

REACTIONS (1)
  - Weight decreased [None]

NARRATIVE: CASE EVENT DATE: 20160618
